FAERS Safety Report 6213912-3 (Version None)
Quarter: 2009Q2

REPORT INFORMATION
  Report Type: 
  Country: None (occurrence: None)
  Receive Date: 20090602
  Receipt Date: 20090518
  Transmission Date: 20091009
  Serious: Yes (Other)
  Sender: FDA-Public Use
  Company Number: 2009-197042-NL

PATIENT
  Age: 26 Year
  Sex: Female
  Weight: 77.1 kg

DRUGS (1)
  1. IMPLANON [Suspect]
     Indication: CONTRACEPTION
     Dosage: NI SUBDERMAL
     Route: 059
     Dates: start: 20071101

REACTIONS (4)
  - C-REACTIVE PROTEIN INCREASED [None]
  - HIGH DENSITY LIPOPROTEIN INCREASED [None]
  - INTERNATIONAL NORMALISED RATIO INCREASED [None]
  - LOW DENSITY LIPOPROTEIN INCREASED [None]
